FAERS Safety Report 6255539-3 (Version None)
Quarter: 2009Q2

REPORT INFORMATION
  Report Type: 
  Country: None (occurrence: None)
  Receive Date: 20090630
  Receipt Date: 20090622
  Transmission Date: 20091009
  Serious: Yes (Other)
  Sender: FDA-Public Use
  Company Number: 2009AL004193

PATIENT
  Age: 41 Year
  Sex: Male

DRUGS (2)
  1. GABAPENTIN [Suspect]
     Dosage: 900 MG; PO
     Route: 048
  2. ZONEGRAN [Concomitant]

REACTIONS (2)
  - DRUG INTERACTION [None]
  - MUTISM [None]
